FAERS Safety Report 10155685 (Version 2)
Quarter: 2014Q2

REPORT INFORMATION
  Report Type: Spontaneous
  Country: NL (occurrence: NL)
  Receive Date: 20140506
  Receipt Date: 20140506
  Transmission Date: 20141212
  Serious: Yes (Other)
  Sender: FDA-Public Use
  Company Number: PHHY2013NL092851

PATIENT
  Age: 75 Year
  Sex: Male
  Weight: 56 kg

DRUGS (4)
  1. CICLOSPORIN [Suspect]
     Indication: NEPHROTIC SYNDROME
     Dosage: 50 MG, UNK
     Dates: start: 201202, end: 201306
  2. RIFAMPICINE [Concomitant]
     Indication: WOUND SECRETION
     Dosage: 300 MG, UNK
     Dates: start: 201303, end: 201306
  3. MOXIFLOXACIN [Concomitant]
     Indication: WOUND SECRETION
     Dosage: 400 MG, UNK
     Dates: start: 201303, end: 201306
  4. PREDNISOLON [Concomitant]
     Dosage: 3 DF, QD
     Dates: start: 201106

REACTIONS (3)
  - Renal failure [Recovered/Resolved]
  - Posterior reversible encephalopathy syndrome [Unknown]
  - Toxicity to various agents [Recovered/Resolved]
